FAERS Safety Report 10575264 (Version 2)
Quarter: 2014Q4

REPORT INFORMATION
  Report Type: Spontaneous
  Country: US (occurrence: None)
  Receive Date: 20141107
  Receipt Date: 20141113
  Transmission Date: 20150529
  Serious: Yes (Death)
  Sender: FDA-Public Use
  Company Number: 2014-US-014416

PATIENT
  Age: 35 Year
  Sex: Male

DRUGS (10)
  1. CLOMIPRAMINE HCL (CLOMIPRAMINE HYDROCLORIDE) [Concomitant]
  2. KLONOPIN [Concomitant]
     Active Substance: CLONAZEPAM
  3. COGENTIN (BENZATROPINE MESILATE) [Concomitant]
  4. REMERON [Concomitant]
     Active Substance: MIRTAZAPINE
  5. TRILEPTAL [Concomitant]
     Active Substance: OXCARBAZEPINE
  6. FAZACLO [Suspect]
     Active Substance: CLOZAPINE
     Indication: SCHIZOPHRENIA
     Route: 048
     Dates: start: 20120706
  7. ZYPREXA [Concomitant]
     Active Substance: OLANZAPINE
  8. DEPAKOTE [Concomitant]
     Active Substance: DIVALPROEX SODIUM
  9. RISPERDAL [Concomitant]
     Active Substance: RISPERIDONE
  10. INDERAL [Concomitant]
     Active Substance: PROPRANOLOL HYDROCHLORIDE

REACTIONS (2)
  - Cardiac disorder [None]
  - Death [None]

NARRATIVE: CASE EVENT DATE: 20141006
